FAERS Safety Report 18830648 (Version 1)
Quarter: 2021Q1

REPORT INFORMATION
  Report Type: Spontaneous
  Country: US (occurrence: US)
  Receive Date: 20210201
  Receipt Date: 20210201
  Transmission Date: 20210419
  Serious: No
  Sender: FDA-Public Use
  Company Number: US-ABBVIE-20K-163-3664931-00

PATIENT
  Age: 29 Year
  Sex: Female
  Weight: 52.66 kg

DRUGS (3)
  1. HUMIRA [Suspect]
     Active Substance: ADALIMUMAB
     Indication: CROHN^S DISEASE
     Dosage: STARTING DOSE
     Route: 058
     Dates: start: 20201120
  2. FLUOXETINE (NON?ABBVIE) [Concomitant]
     Indication: DEPRESSION
     Route: 065
  3. TRI?LO?MARZIA (NON?ABBVIE) [Concomitant]
     Indication: CONTRACEPTION

REACTIONS (3)
  - Device issue [Recovered/Resolved]
  - Wrong technique in product usage process [Recovered/Resolved]
  - Injection site haemorrhage [Recovered/Resolved]

NARRATIVE: CASE EVENT DATE: 20201120
